FAERS Safety Report 23366745 (Version 1)
Quarter: 2024Q1

REPORT INFORMATION
  Report Type: Spontaneous
  Country: CN (occurrence: CN)
  Receive Date: 20240104
  Receipt Date: 20240104
  Transmission Date: 20240409
  Serious: Yes (Other)
  Sender: FDA-Public Use
  Company Number: CN-PFIZER INC-PV202300209176

PATIENT
  Age: 16 Month
  Sex: Female
  Weight: 10 kg

DRUGS (13)
  1. METHOTREXATE SODIUM [Suspect]
     Active Substance: METHOTREXATE SODIUM
     Indication: Chemotherapy
     Dosage: 7.5 MG, 1X/DAY
     Route: 037
     Dates: start: 20231219, end: 20231219
  2. METHOTREXATE SODIUM [Suspect]
     Active Substance: METHOTREXATE SODIUM
     Indication: Acute myeloid leukaemia
  3. CYTARABINE [Suspect]
     Active Substance: CYTARABINE
     Indication: Chemotherapy
     Dosage: 0.67 G, 1X/DAY
     Route: 041
     Dates: start: 20231219, end: 20231220
  4. CYTARABINE [Suspect]
     Active Substance: CYTARABINE
     Indication: Acute myeloid leukaemia
  5. CYTARABINE [Suspect]
     Active Substance: CYTARABINE
     Indication: Chemotherapy
     Dosage: 0.015 G, 1X/DAY
     Route: 037
     Dates: start: 20231219, end: 20231219
  6. CYTARABINE [Suspect]
     Active Substance: CYTARABINE
     Indication: Acute myeloid leukaemia
  7. DAUNORUBICIN [Suspect]
     Active Substance: DAUNORUBICIN
     Indication: Chemotherapy
     Dosage: 22.5 MG, 1X/DAY
     Route: 041
     Dates: start: 20231219, end: 20231220
  8. DAUNORUBICIN [Suspect]
     Active Substance: DAUNORUBICIN
     Indication: Acute myeloid leukaemia
  9. DEXAMETHASONE SODIUM PHOSPHATE [Concomitant]
     Active Substance: DEXAMETHASONE PHOSPHATE\DEXAMETHASONE SODIUM PHOSPHATE
     Indication: Chemotherapy
     Dosage: 2 MG, 1X/DAY
     Route: 037
     Dates: start: 20231219, end: 20231219
  10. DEXAMETHASONE SODIUM PHOSPHATE [Concomitant]
     Active Substance: DEXAMETHASONE PHOSPHATE\DEXAMETHASONE SODIUM PHOSPHATE
     Indication: Acute myeloid leukaemia
  11. SODIUM CHLORIDE [Concomitant]
     Active Substance: SODIUM CHLORIDE
     Indication: Vehicle solution use
     Dosage: 250 ML, 1X/DAY
     Route: 041
     Dates: start: 20231219, end: 20231220
  12. SODIUM CHLORIDE [Concomitant]
     Active Substance: SODIUM CHLORIDE
     Indication: Vehicle solution use
     Dosage: 100 ML, 1X/DAY
     Route: 041
     Dates: start: 20231219, end: 20231220
  13. SODIUM CHLORIDE [Concomitant]
     Active Substance: SODIUM CHLORIDE
     Indication: Vehicle solution use
     Dosage: 5 ML, 1X/DAY
     Route: 037
     Dates: start: 20231219, end: 20231219

REACTIONS (1)
  - Myelosuppression [Recovering/Resolving]

NARRATIVE: CASE EVENT DATE: 20231223
